FAERS Safety Report 8881438 (Version 1)
Quarter: 2012Q4

REPORT INFORMATION
  Report Type: 
  Country: JP (occurrence: JP)
  Receive Date: 20121101
  Receipt Date: 20121101
  Transmission Date: 20130627
  Serious: Yes (Other)
  Sender: FDA-Public Use
  Company Number: JP-ROCHE-1147763

PATIENT
  Age: 74 Year
  Sex: Female

DRUGS (2)
  1. VESANOID [Suspect]
     Indication: ACUTE PROMYELOCYTIC LEUKAEMIA
     Route: 048
     Dates: start: 20120904, end: 20121012
  2. WARFARIN [Concomitant]
     Dosage: Dosage is uncertain.
     Route: 048

REACTIONS (1)
  - Blood calcium increased [Recovering/Resolving]
